FAERS Safety Report 8763414 (Version 3)
Quarter: 2014Q3

REPORT INFORMATION
  Report Type: Spontaneous
  Country: US (occurrence: US)
  Receive Date: 20120831
  Receipt Date: 20140815
  Transmission Date: 20150326
  Serious: Yes (Hospitalization)
  Sender: FDA-Public Use
  Company Number: US-009507513-1208USA007414

PATIENT
  Sex: Female
  Weight: 80.27 kg

DRUGS (1)
  1. NUVARING [Suspect]
     Active Substance: ETHINYL ESTRADIOL\ETONOGESTREL
     Indication: CONTRACEPTION
     Dosage: 0.12-0.015 MG/ 24 HR
     Route: 067
     Dates: start: 20100119, end: 20101020

REACTIONS (5)
  - Haematochezia [Unknown]
  - Anaemia [Unknown]
  - Obesity [Unknown]
  - Deep vein thrombosis [Not Recovered/Not Resolved]
  - Coagulopathy [Unknown]

NARRATIVE: CASE EVENT DATE: 201010
